FAERS Safety Report 9252443 (Version 1)
Quarter: 2013Q1

REPORT INFORMATION
  Report Type: Spontaneous
  Country: US (occurrence: None)
  Receive Date: 20130305
  Receipt Date: 20130305
  Transmission Date: 20140127
  Serious: Yes (Other)
  Sender: FDA-Public Use
  Company Number: 163-21880-12083246

PATIENT
  Age: 76 Year
  Sex: Male
  Weight: 94.26 kg

DRUGS (1)
  1. REVLIMID [Suspect]
     Indication: PLASMA CELL MYELOMA
     Dosage: 10/2010 - 2012, CAPSULE, 15 MG, 21 IN 28 D, PO

REACTIONS (3)
  - Renal impairment [None]
  - Full blood count decreased [None]
  - Dyspnoea [None]
